FAERS Safety Report 15812611 (Version 1)
Quarter: 2019Q1

REPORT INFORMATION
  Report Type: Spontaneous
  Country: US (occurrence: US)
  Receive Date: 20190111
  Receipt Date: 20190111
  Transmission Date: 20190417
  Serious: No
  Sender: FDA-Public Use
  Company Number: US-GLAXOSMITHKLINE-US2019000926

PATIENT
  Sex: Female
  Weight: 250 kg

DRUGS (1)
  1. ALLI [Suspect]
     Active Substance: ORLISTAT
     Indication: WEIGHT LOSS DIET
     Dosage: UNK
     Route: 048

REACTIONS (4)
  - Treatment noncompliance [Unknown]
  - Flatulence [Unknown]
  - Pain [Unknown]
  - Rectal discharge [Unknown]
